FAERS Safety Report 8138087-5 (Version None)
Quarter: 2012Q1

REPORT INFORMATION
  Report Type: 
  Country: None (occurrence: None)
  Receive Date: 20120103
  Receipt Date: 20110913
  Transmission Date: 20120608
  Serious: No
  Sender: FDA-Public Use
  Company Number: AE-2011-001517

PATIENT
  Age: 60 Year
  Sex: Male

DRUGS (7)
  1. RIBAVIRIN [Concomitant]
  2. LOSARTAN POTASSIUM [Concomitant]
  3. METOPROLOL TARTRATE [Concomitant]
  4. AMLODIPINE [Concomitant]
  5. INCIVEK [Suspect]
     Dosage: 2250 MG (1125 MG, 1 IN 12 HR), ORAL
     Route: 048
     Dates: start: 20110908
  6. PEGASYS [Concomitant]
  7. ASPIRIN [Concomitant]

REACTIONS (1)
  - INCORRECT DOSE ADMINISTERED [None]
